FAERS Safety Report 9848762 (Version 1)
Quarter: 2013Q4

REPORT INFORMATION
  Report Type: Spontaneous
  Country: US (occurrence: None)
  Receive Date: 20131226
  Receipt Date: 20131226
  Transmission Date: 20140711
  Serious: Yes (Other)
  Sender: FDA-Public Use
  Company Number: PHEH2013US014809

PATIENT
  Sex: Male

DRUGS (1)
  1. TEKTURNA [Suspect]
     Route: 048

REACTIONS (2)
  - Gout [None]
  - Blood uric acid increased [None]
